FAERS Safety Report 7273727-4 (Version None)
Quarter: 2011Q1

REPORT INFORMATION
  Report Type: 
  Country: None (occurrence: None)
  Receive Date: 20110203
  Receipt Date: 20110125
  Transmission Date: 20110831
  Serious: Yes (Death)
  Sender: FDA-Public Use
  Company Number: US-CELGENEUS-163-21880-10110708

PATIENT
  Sex: Male

DRUGS (7)
  1. PREDNISONE [Concomitant]
     Route: 065
     Dates: start: 20101001
  2. REVLIMID [Suspect]
     Indication: MYELODYSPLASTIC SYNDROME
     Route: 048
     Dates: start: 20080301
  3. REVLIMID [Suspect]
     Route: 048
     Dates: start: 20080401
  4. PREDNISONE [Concomitant]
     Route: 065
     Dates: start: 20100923, end: 20101001
  5. AMICAR [Concomitant]
     Route: 065
     Dates: start: 20100925
  6. NAPROSYN [Concomitant]
     Route: 065
     Dates: start: 20100728
  7. REVLIMID [Suspect]
     Route: 048
     Dates: start: 20100629, end: 20100922

REACTIONS (3)
  - LUNG INFILTRATION [None]
  - LEUKAEMIA [None]
  - MYELODYSPLASTIC SYNDROME TRANSFORMATION [None]
